FAERS Safety Report 7782710-1 (Version None)
Quarter: 2011Q3

REPORT INFORMATION
  Report Type: 
  Country: None (occurrence: None)
  Receive Date: 20110927
  Receipt Date: 20110927
  Transmission Date: 20111222
  Serious: Yes (Hospitalization)
  Sender: FDA-Public Use
  Company Number: None

PATIENT
  Sex: Male
  Weight: 93 kg

DRUGS (6)
  1. DOXORUBICIN HYDROCHLORIDE [Suspect]
     Dosage: 80 MG
  2. RITUXIMAB (MOAB C2B8 ANTI CD20, CHIMERIC) [Suspect]
     Dosage: 800 MG
  3. CYCLOPHOSPHAMIDE [Suspect]
     Dosage: 1600 MG
  4. VINCRISTINE SULFATE [Suspect]
     Dosage: 3.6 MG
  5. ETOPOSIDE [Suspect]
     Dosage: 440 MG
  6. PREDNISONE [Suspect]
     Dosage: 1300 MG

REACTIONS (4)
  - VOMITING [None]
  - HYPOKALAEMIA [None]
  - NAUSEA [None]
  - DEHYDRATION [None]
